FAERS Safety Report 11219666 (Version 3)
Quarter: 2015Q3

REPORT INFORMATION
  Report Type: Report from Study
  Country: AU (occurrence: AU)
  Receive Date: 20150625
  Receipt Date: 20150706
  Transmission Date: 20151125
  Serious: Yes (Death, Disabling, Other)
  Sender: FDA-Public Use
  Company Number: PHHY2015AU038525

PATIENT
  Age: 40 Year
  Sex: Male

DRUGS (1)
  1. EVEROLIMUS [Suspect]
     Active Substance: EVEROLIMUS
     Indication: NEUROENDOCRINE TUMOUR
     Dosage: 10 MG, QD
     Route: 048
     Dates: start: 20150417, end: 20150515

REACTIONS (10)
  - Decreased activity [Unknown]
  - Computerised tomogram thorax abnormal [Unknown]
  - Sudden death [Fatal]
  - Malaise [Unknown]
  - Gait disturbance [Unknown]
  - Lethargy [Unknown]
  - Pneumonitis [Unknown]
  - Dyspnoea [Unknown]
  - Fatigue [Unknown]
  - Off label use [Unknown]

NARRATIVE: CASE EVENT DATE: 20150501
